FAERS Safety Report 8609812-1 (Version None)
Quarter: 2012Q3

REPORT INFORMATION
  Report Type: 
  Country: None (occurrence: None)
  Receive Date: 20120821
  Receipt Date: 20120613
  Transmission Date: 20120928
  Serious: Yes (Death)
  Sender: FDA-Public Use
  Company Number: JP-009507513-1208JPN007372

PATIENT

DRUGS (6)
  1. TELAVIC [Suspect]
     Route: 048
     Dates: start: 20120514, end: 20120601
  2. PEG-INTRON [Suspect]
     Dosage: 0.8MCG/KG/WEEK
     Route: 058
  3. REBETOL [Suspect]
     Indication: HEPATITIS C
     Route: 048
     Dates: start: 20120224, end: 20120425
  4. REBETOL [Suspect]
     Route: 048
     Dates: start: 20120426
  5. PEG-INTRON [Suspect]
     Indication: HEPATITIS C
     Dosage: 1.0MCG/KG/WEEK
     Route: 058
     Dates: start: 20120224
  6. TELAVIC [Suspect]
     Indication: HEPATITIS C
     Route: 048
     Dates: start: 20120224, end: 20120513

REACTIONS (2)
  - HEPATIC FAILURE [None]
  - HAEMOGLOBIN DECREASED [None]
